FAERS Safety Report 23746222 (Version 1)
Quarter: 2024Q2

REPORT INFORMATION
  Report Type: Report from Study
  Country: BE (occurrence: BE)
  Receive Date: 20240416
  Receipt Date: 20240416
  Transmission Date: 20240716
  Serious: Yes (Death)
  Sender: FDA-Public Use
  Company Number: BE-ABBVIE-5720911

PATIENT
  Age: 87 Year
  Sex: Female
  Weight: 67 kg

DRUGS (14)
  1. CARBIDOPA\LEVODOPA [Suspect]
     Active Substance: CARBIDOPA\LEVODOPA
     Indication: Parkinson^s disease
     Route: 050
     Dates: start: 20170220
  2. CARBIDOPA\LEVODOPA [Suspect]
     Active Substance: CARBIDOPA\LEVODOPA
     Dosage: MD: 6.5 CD: 1.7 ML/H, ED 1.40 ML DURING 16 HOURS.
     Route: 050
     Dates: start: 20231107, end: 20240312
  3. CARBIDOPA\LEVODOPA [Suspect]
     Active Substance: CARBIDOPA\LEVODOPA
     Dosage: MD: 6.5 CD: 1.9 ML/H, ED 1.40 ML DURING 16 HOURS.
     Route: 050
     Dates: start: 20240312, end: 20240409
  4. BENSERAZIDE\LEVODOPA [Concomitant]
     Active Substance: BENSERAZIDE\LEVODOPA
     Indication: Product used for unknown indication
     Dosage: FORM STRENGTH: 250 MG, FREQUENCY TEXT: 1/4 TABLET AT 10AM
     Route: 048
  5. BENSERAZIDE\LEVODOPA [Concomitant]
     Active Substance: BENSERAZIDE\LEVODOPA
     Indication: Product used for unknown indication
     Dosage: FORM STRENGTH: 250 MG, FREQUENCY TEXT: 3/4 TABLET AT 7AM
     Route: 048
  6. ELDEPRYL [Concomitant]
     Active Substance: SELEGILINE HYDROCHLORIDE
     Indication: Product used for unknown indication
     Dosage: FORM STRENGTH: 5MG,  FREQUENCY TEXT: 8 HOUR
  7. CRESTOR [Concomitant]
     Active Substance: ROSUVASTATIN CALCIUM
     Indication: Product used for unknown indication
     Dosage: FORM STRENGTH: 10MG
  8. Temesta [Concomitant]
     Indication: Product used for unknown indication
     Dosage: FORM STRENGTH: 2.5MG
  9. MOVICOL [Concomitant]
     Active Substance: POLYETHYLENE GLYCOL 3350\POTASSIUM CHLORIDE\SODIUM BICARBONATE\SODIUM CHLORIDE
     Indication: Product used for unknown indication
     Dosage: MOVICOL SACHET
  10. XADAGO [Concomitant]
     Active Substance: SAFINAMIDE MESYLATE
     Indication: Product used for unknown indication
     Dosage: FORM STRENGTH: 50 MG, FREQUENCY TEXT: 8 HOURS
  11. PERINDOPRIL [Concomitant]
     Active Substance: PERINDOPRIL
     Indication: Product used for unknown indication
     Dosage: FORM STRENGTH: 5MG
  12. Pantomed [Concomitant]
     Indication: Product used for unknown indication
     Dosage: FORM STRENGTH: 40MG
  13. BUMETANIDE [Concomitant]
     Active Substance: BUMETANIDE
     Indication: Product used for unknown indication
     Dosage: FORM STRENGTH: 1 MG
  14. PRAMIPEXOLE [Concomitant]
     Active Substance: PRAMIPEXOLE\PRAMIPEXOLE DIHYDROCHLORIDE
     Indication: Product used for unknown indication
     Dosage: FORM STRENGTH: 1.05 MG, FREQUENCY TEXT: 8 HOURS

REACTIONS (1)
  - Death [Fatal]

NARRATIVE: CASE EVENT DATE: 20240409
